FAERS Safety Report 9661568 (Version 2)
Quarter: 2013Q4

REPORT INFORMATION
  Report Type: Spontaneous
  Country: US (occurrence: US)
  Receive Date: 20131031
  Receipt Date: 20131031
  Transmission Date: 20140711
  Serious: No
  Sender: FDA-Public Use
  Company Number: US-PURDUE-USA-2010-0055194

PATIENT
  Age: 37 Year
  Sex: Male

DRUGS (1)
  1. OXYCONTIN (NDA 22-272) [Suspect]
     Indication: PAIN
     Dosage: 80 MG, QID
     Dates: start: 20100917

REACTIONS (7)
  - Hypervigilance [Recovered/Resolved]
  - Faeces discoloured [Recovered/Resolved]
  - Inadequate analgesia [Recovered/Resolved]
  - Abdominal pain upper [Recovered/Resolved]
  - Intentional drug misuse [Recovered/Resolved]
  - Irritability [Recovered/Resolved]
  - Drug ineffective [Unknown]
